FAERS Safety Report 4887874-5 (Version None)
Quarter: 2006Q1

REPORT INFORMATION
  Report Type: 
  Country: None (occurrence: None)
  Receive Date: 20060123
  Receipt Date: 20050301
  Transmission Date: 20060701
  Serious: Yes (Other)
  Sender: FDA-Public Use
  Company Number: US-MERCK-0503USA00404

PATIENT
  Age: 57 Year
  Sex: Female
  Weight: 130 kg

DRUGS (7)
  1. VIOXX [Suspect]
     Indication: ARTHRITIS
     Route: 048
     Dates: end: 20031001
  2. TOPROL-XL [Concomitant]
     Route: 065
     Dates: start: 20030201
  3. PLAVIX [Concomitant]
     Route: 065
     Dates: start: 20030301
  4. LIPITOR [Concomitant]
     Route: 065
     Dates: start: 20030301
  5. IMIPRAMINE HYDROCHLORIDE [Concomitant]
     Route: 065
  6. VICODIN [Concomitant]
     Route: 065
  7. [THERAPY UNSPECIFIED] [Concomitant]
     Route: 065

REACTIONS (6)
  - BLOOD CHOLESTEROL ABNORMAL [None]
  - CARDIAC DISORDER [None]
  - CATHETERISATION CARDIAC [None]
  - CORONARY ARTERY DISEASE [None]
  - JOINT INJURY [None]
  - MYOCARDIAL INFARCTION [None]
